FAERS Safety Report 25777955 (Version 2)
Quarter: 2025Q4

REPORT INFORMATION
  Report Type: Report from Study
  Country: US (occurrence: US)
  Receive Date: 20250909
  Receipt Date: 20251003
  Transmission Date: 20260117
  Serious: Yes (Hospitalization)
  Sender: ABBVIE
  Company Number: US-ABBVIE-6449359

PATIENT
  Age: 56 Year
  Sex: Female

DRUGS (1)
  1. RINVOQ [Suspect]
     Active Substance: UPADACITINIB
     Indication: Colitis ulcerative
     Dosage: FIRST WEEK OF INDUCTION DOSING
     Route: 048
     Dates: start: 20250723, end: 20250802

REACTIONS (1)
  - Thrombosis [Recovered/Resolved]

NARRATIVE: CASE EVENT DATE: 20250801
